FAERS Safety Report 17860015 (Version 1)
Quarter: 2020Q2

REPORT INFORMATION
  Report Type: Report from Study
  Country: US (occurrence: US)
  Receive Date: 20200604
  Receipt Date: 20200604
  Transmission Date: 20200714
  Serious: Yes (Other)
  Sender: FDA-Public Use
  Company Number: US-MYLANLABS-2020M1053440

PATIENT
  Age: 79 Year
  Sex: Female

DRUGS (4)
  1. PACLITAXEL. [Suspect]
     Active Substance: PACLITAXEL
     Indication: CLEAR CELL CARCINOMA OF CERVIX
     Dosage: RECEIVED 6 CYCLES
     Route: 065
  2. CARBOPLATIN. [Suspect]
     Active Substance: CARBOPLATIN
     Indication: CLEAR CELL CARCINOMA OF CERVIX
     Dosage: RECEIVED 6 CYCLES
     Route: 065
  3. CONJUGATED ESTROGENS [Concomitant]
     Active Substance: ESTROGENS, CONJUGATED
     Indication: GENITOURINARY SYMPTOM
     Dosage: 0.5 MILLIGRAM, QD(RECEIVED 0.625 MG/G)
     Route: 067
  4. CONJUGATED ESTROGENS [Concomitant]
     Active Substance: ESTROGENS, CONJUGATED
     Indication: MENOPAUSAL SYMPTOMS

REACTIONS (2)
  - Genitourinary symptom [Unknown]
  - Menopausal symptoms [Unknown]
